FAERS Safety Report 4781313-0 (Version None)
Quarter: 2005Q3

REPORT INFORMATION
  Report Type: 
  Country: None (occurrence: None)
  Receive Date: 20050928
  Receipt Date: 20050721
  Transmission Date: 20060218
  Serious: Yes (Other)
  Sender: FDA-Public Use
  Company Number: 2005SE04244

PATIENT
  Age: 37 Year
  Sex: Female
  Weight: 39 kg

DRUGS (1)
  1. BLOPRESS [Suspect]
     Indication: DIABETIC NEPHROPATHY
     Route: 048
     Dates: start: 20050629, end: 20050704

REACTIONS (1)
  - RENAL FAILURE ACUTE [None]
